FAERS Safety Report 6530803-9 (Version None)
Quarter: 2010Q1

REPORT INFORMATION
  Report Type: 
  Country: None (occurrence: None)
  Receive Date: 20100108
  Receipt Date: 20090223
  Transmission Date: 20100710
  Serious: No
  Sender: FDA-Public Use
  Company Number: A0770480A

PATIENT
  Age: 46 Year
  Sex: Male

DRUGS (2)
  1. LOVAZA [Suspect]
     Indication: DRUG USE FOR UNKNOWN INDICATION
  2. VITAMIN-MINERAL COMPOUND TAB [Suspect]
     Indication: DRUG USE FOR UNKNOWN INDICATION
     Dosage: 1U TWICE PER DAY

REACTIONS (3)
  - DRUG INTERACTION [None]
  - MUSCULOSKELETAL STIFFNESS [None]
  - MYALGIA [None]
